FAERS Safety Report 4978416-4 (Version None)
Quarter: 2006Q2

REPORT INFORMATION
  Report Type: 
  Country: None (occurrence: None)
  Receive Date: 20060417
  Receipt Date: 20060329
  Transmission Date: 20061013
  Serious: Yes (Hospitalization)
  Sender: FDA-Public Use
  Company Number: DSA_27788_2006

PATIENT
  Age: 56 Year
  Sex: Male
  Weight: 47 kg

DRUGS (9)
  1. RENIVACE [Suspect]
     Indication: GLOMERULONEPHRITIS MEMBRANOUS
     Dosage: 1 DF Q DAY PO
     Route: 048
     Dates: start: 20051228, end: 20060130
  2. MEDROL [Suspect]
     Indication: GLOMERULONEPHRITIS MEMBRANOUS
     Dosage: 6 DF Q DAY PO
     Route: 048
     Dates: start: 20051215, end: 20060130
  3. SYNTHEPEN [Suspect]
     Indication: GLOMERULONEPHRITIS MEMBRANOUS
     Dosage: 800000 MU Q DAY PO
     Route: 048
     Dates: start: 20051215, end: 20060130
  4. PERSANTIN [Suspect]
     Indication: GLOMERULONEPHRITIS MEMBRANOUS
     Dosage: 6 DF Q DAY PO
     Route: 048
     Dates: start: 20051215, end: 20060130
  5. GLYCYRON [Suspect]
     Indication: GLOMERULONEPHRITIS MEMBRANOUS
     Dosage: 3 DF Q DAY PO
     Route: 048
     Dates: start: 20051215, end: 20060130
  6. ASPARA K [Suspect]
     Indication: GLOMERULONEPHRITIS MEMBRANOUS
     Dosage: 1800 MG Q DAY PO
     Route: 048
     Dates: start: 20051215, end: 20060130
  7. GASLON N [Suspect]
     Indication: GLOMERULONEPHRITIS MEMBRANOUS
     Dosage: 1 DF Q DAY PO
     Route: 048
     Dates: start: 20051215, end: 20060130
  8. GASTER [Suspect]
     Indication: GLOMERULONEPHRITIS MEMBRANOUS
     Dosage: 40 MG Q DAY PO
     Route: 048
     Dates: start: 20051215, end: 20060130
  9. BREDININ [Suspect]
     Indication: GLOMERULONEPHRITIS MEMBRANOUS
     Dosage: 6 DF Q DAY PO
     Route: 048
     Dates: start: 20051228, end: 20060130

REACTIONS (20)
  - ASPARTATE AMINOTRANSFERASE DECREASED [None]
  - BLOOD CHLORIDE DECREASED [None]
  - BLOOD CHOLESTEROL INCREASED [None]
  - BLOOD CREATININE DECREASED [None]
  - BLOOD LACTATE DEHYDROGENASE INCREASED [None]
  - BLOOD POTASSIUM DECREASED [None]
  - BLOOD PRESSURE DIASTOLIC DECREASED [None]
  - BLOOD SODIUM DECREASED [None]
  - BLOOD URINE PRESENT [None]
  - EOSINOPHIL PERCENTAGE DECREASED [None]
  - HAEMATOCRIT DECREASED [None]
  - HAEMOGLOBIN DECREASED [None]
  - LYMPHOCYTE PERCENTAGE DECREASED [None]
  - MONOCYTE PERCENTAGE INCREASED [None]
  - NEUTROPHIL PERCENTAGE INCREASED [None]
  - PROTEIN TOTAL DECREASED [None]
  - PROTEIN URINE PRESENT [None]
  - RED BLOOD CELL COUNT DECREASED [None]
  - TOXIC EPIDERMAL NECROLYSIS [None]
  - WHITE BLOOD CELL COUNT INCREASED [None]
